FAERS Safety Report 11774289 (Version 1)
Quarter: 2015Q4

REPORT INFORMATION
  Report Type: Spontaneous
  Country: ES (occurrence: ES)
  Receive Date: 20151124
  Receipt Date: 20151124
  Transmission Date: 20160304
  Serious: Yes (Death, Other)
  Sender: FDA-Public Use
  Company Number: ES-JNJFOC-20151118941

PATIENT

DRUGS (1)
  1. ITRACONAZOLE. [Suspect]
     Active Substance: ITRACONAZOLE
     Indication: PROPHYLAXIS
     Dosage: 200-400 MG/DAY
     Route: 048
     Dates: start: 2001, end: 2004

REACTIONS (3)
  - Drug ineffective [Fatal]
  - Systemic mycosis [Not Recovered/Not Resolved]
  - Gastrointestinal disorder [Unknown]
